FAERS Safety Report 12602375 (Version 1)
Quarter: 2016Q3

REPORT INFORMATION
  Report Type: Spontaneous
  Country: US (occurrence: US)
  Receive Date: 20160728
  Receipt Date: 20160728
  Transmission Date: 20161109
  Serious: No
  Sender: FDA-Public Use
  Company Number: US-PFIZER INC-2016361496

PATIENT
  Age: 47 Year
  Sex: Female
  Weight: 48.99 kg

DRUGS (8)
  1. CYMBALTA [Suspect]
     Active Substance: DULOXETINE HYDROCHLORIDE
     Dosage: TWO 60MG CAPSULES BY MOUTH ONCE DAILY
     Route: 048
  2. SIMVASTATIN. [Concomitant]
     Active Substance: SIMVASTATIN
     Indication: BLOOD CHOLESTEROL INCREASED
  3. CYMBALTA [Suspect]
     Active Substance: DULOXETINE HYDROCHLORIDE
     Indication: ANXIETY
     Dosage: 30 MG, DAILY
     Route: 048
     Dates: start: 201605
  4. ATIVAN [Suspect]
     Active Substance: LORAZEPAM
     Dosage: TWO 0.5MG PILLS BY MOUTH NIGHTLY
     Route: 048
  5. LYRICA [Suspect]
     Active Substance: PREGABALIN
     Indication: BURNING SENSATION
     Dosage: 150 MG, UNK
  6. CYMBALTA [Suspect]
     Active Substance: DULOXETINE HYDROCHLORIDE
     Indication: BURNING SENSATION
     Dosage: 60 MG, DAILY
     Route: 048
  7. LYRICA [Suspect]
     Active Substance: PREGABALIN
     Indication: PAIN IN EXTREMITY
     Dosage: 75MG BY MOUTH ONCE DAILY
     Route: 048
     Dates: end: 201604
  8. ATIVAN [Suspect]
     Active Substance: LORAZEPAM
     Indication: INSOMNIA
     Dosage: 0.5 MG, 1X/DAY
     Route: 048
     Dates: start: 201604

REACTIONS (4)
  - Drug ineffective [Unknown]
  - Tremor [Unknown]
  - Anxiety [Recovering/Resolving]
  - Insomnia [Recovering/Resolving]
